FAERS Safety Report 24630900 (Version 1)
Quarter: 2024Q4

REPORT INFORMATION
  Report Type: Spontaneous
  Country: US (occurrence: None)
  Receive Date: 20241116
  Receipt Date: 20241116
  Transmission Date: 20250114
  Serious: No
  Sender: Public
  Company Number: None

PATIENT
  Age: 56 Year
  Sex: Female
  Weight: 61.65 kg

DRUGS (5)
  1. TOPIRAMATE [Suspect]
     Active Substance: TOPIRAMATE
     Indication: Headache
     Dosage: 2 TBLETS TWICE  DAY ORAL
     Route: 048
     Dates: start: 20120101
  2. LAMICTAL [Concomitant]
     Active Substance: LAMOTRIGINE
  3. AMLODIPINE [Concomitant]
     Active Substance: AMLODIPINE BESYLATE
  4. VITAMINS [Concomitant]
     Active Substance: VITAMINS
  5. hair skin nails vitamin [Concomitant]

REACTIONS (2)
  - Therapy change [None]
  - Unevaluable event [None]

NARRATIVE: CASE EVENT DATE: 20241101
